FAERS Safety Report 4842513-4 (Version None)
Quarter: 2005Q4

REPORT INFORMATION
  Report Type: 
  Country: None (occurrence: None)
  Receive Date: 20051129
  Receipt Date: 20051116
  Transmission Date: 20060501
  Serious: Yes (Hospitalization)
  Sender: FDA-Public Use
  Company Number: 219557

PATIENT
  Age: 68 Year
  Sex: Male
  Weight: 79.8 kg

DRUGS (3)
  1. AVASTIN [Suspect]
     Indication: NON-SMALL CELL LUNG CANCER
     Dates: start: 20050715
  2. GEMCITABINE (GEMCITABINE HYDROCHLORIDE) [Suspect]
     Indication: NON-SMALL CELL LUNG CANCER
     Dosage: 1250 MG/M2, INTRAVENOUS
     Route: 042
     Dates: start: 20050715, end: 20050901
  3. CARBOPLATIN [Suspect]
     Indication: NON-SMALL CELL LUNG CANCER
     Dosage: 5 AUC,INTRAVENOUS
     Route: 042
     Dates: start: 20050715, end: 20050901

REACTIONS (15)
  - ASTHENIA [None]
  - COUGH [None]
  - DECREASED APPETITE [None]
  - DENTAL EXAMINATION ABNORMAL [None]
  - DISEASE PROGRESSION [None]
  - FALL [None]
  - HAEMOPTYSIS [None]
  - INFECTION [None]
  - ORAL INTAKE REDUCED [None]
  - ORAL PAIN [None]
  - PAIN IN JAW [None]
  - PANCYTOPENIA [None]
  - PNEUMONIA [None]
  - SEPSIS [None]
  - TOOTH LOSS [None]
